FAERS Safety Report 7687391-3 (Version None)
Quarter: 2011Q3

REPORT INFORMATION
  Report Type: 
  Country: None (occurrence: None)
  Receive Date: 20110816
  Receipt Date: 20110811
  Transmission Date: 20111222
  Serious: Yes (Hospitalization)
  Sender: FDA-Public Use
  Company Number: JP-SANOFI-AVENTIS-2011SA051581

PATIENT
  Age: 64 Year
  Sex: Male
  Weight: 64 kg

DRUGS (5)
  1. AMARYL [Concomitant]
     Indication: TYPE 2 DIABETES MELLITUS
     Route: 048
     Dates: end: 20110721
  2. LANTUS [Suspect]
     Indication: TYPE 2 DIABETES MELLITUS
     Dosage: AT BEDTIME
     Route: 058
     Dates: start: 20110722, end: 20110727
  3. JANUVIA [Concomitant]
     Indication: TYPE 2 DIABETES MELLITUS
     Route: 048
     Dates: end: 20110721
  4. METFFORMIN HYDROCHLORIDE [Concomitant]
     Route: 048
     Dates: end: 20110721
  5. NOVORAPID [Suspect]
     Indication: TYPE 2 DIABETES MELLITUS
     Dosage: 2-2-2
     Route: 058
     Dates: start: 20110722, end: 20110727

REACTIONS (2)
  - ALANINE AMINOTRANSFERASE INCREASED [None]
  - ASPARTATE AMINOTRANSFERASE INCREASED [None]
